FAERS Safety Report 14212057 (Version 3)
Quarter: 2018Q1

REPORT INFORMATION
  Report Type: Report from Study
  Country: CA (occurrence: CA)
  Receive Date: 20171122
  Receipt Date: 20180111
  Transmission Date: 20180508
  Serious: Yes (Other)
  Sender: FDA-Public Use
  Company Number: CA-JNJFOC-20171104992

PATIENT
  Age: 80 Year
  Sex: Male
  Weight: 93.89 kg

DRUGS (1)
  1. REMICADE [Suspect]
     Active Substance: INFLIXIMAB
     Indication: COLITIS ULCERATIVE
     Route: 042
     Dates: start: 20141113

REACTIONS (2)
  - Squamous cell carcinoma [Not Recovered/Not Resolved]
  - Post procedural contusion [Unknown]

NARRATIVE: CASE EVENT DATE: 20171115
